FAERS Safety Report 25717570 (Version 7)
Quarter: 2025Q4

REPORT INFORMATION
  Report Type: Spontaneous
  Country: EU (occurrence: EU)
  Receive Date: 20250822
  Receipt Date: 20251129
  Transmission Date: 20260118
  Serious: Yes (Hospitalization)
  Sender: AMGEN
  Company Number: EU-AMGEN-FINSP2024011728

PATIENT
  Age: 72 Year
  Sex: Female

DRUGS (4)
  1. PROLIA [Suspect]
     Active Substance: DENOSUMAB
     Indication: Osteoporosis
     Dosage: 60 MILLIGRAM
     Route: 058
     Dates: start: 20221018
  2. BISOPROLOL FUMARATE [Concomitant]
     Active Substance: BISOPROLOL FUMARATE
     Dosage: UNK
     Route: 065
  3. TRAMADOL [Concomitant]
     Active Substance: TRAMADOL
     Dosage: UNK
     Route: 065
  4. PREDNISOLONE [Concomitant]
     Active Substance: PREDNISOLONE
     Dosage: UNK
     Route: 065

REACTIONS (13)
  - Glossodynia [Not Recovered/Not Resolved]
  - Oral pain [Not Recovered/Not Resolved]
  - Crying [Unknown]
  - Agitation [Unknown]
  - Impaired quality of life [Unknown]
  - Feeding disorder [Recovering/Resolving]
  - Illness [Unknown]
  - Oropharyngeal pain [Unknown]
  - Frustration tolerance decreased [Unknown]
  - Tongue haemorrhage [Unknown]
  - Tongue discomfort [Not Recovered/Not Resolved]
  - Weight decreased [Unknown]
  - Insomnia [Unknown]

NARRATIVE: CASE EVENT DATE: 20220101
